FAERS Safety Report 7442493-1 (Version None)
Quarter: 2011Q2

REPORT INFORMATION
  Report Type: 
  Country: None (occurrence: None)
  Receive Date: 20110419
  Receipt Date: 20110411
  Transmission Date: 20111010
  Serious: Yes (Hospitalization)
  Sender: FDA-Public Use
  Company Number: 1000018595

PATIENT
  Age: 41 Year
  Sex: Female

DRUGS (21)
  1. LANTUS [Concomitant]
  2. PHENERGAN (PROMETHAZINE) (PROMETHAZINE) [Concomitant]
  3. OMEPRAZOLE [Concomitant]
  4. VITAMIN E(VITAMIN E) (VITAMIN E) [Concomitant]
  5. HUMULIN R (INSULIN HUMAN) (INSULIN HUMAN) [Concomitant]
  6. ZESTRIL [Concomitant]
  7. GLUCAGON (GLUCAGON) (GLUCAGON) [Concomitant]
  8. SAVELLA [Suspect]
     Indication: FIBROMYALGIA
     Dosage: 12.5 MG (12.5 MG,1 IN 1 D),ORAL
     Route: 048
     Dates: start: 20110107, end: 20110107
  9. CARAFATE [Concomitant]
  10. TOPAMAX [Concomitant]
  11. SOMA (CARISOPRODOL) (CARISOPROLDOL) [Concomitant]
  12. GARLIC (GARLIC) (GARLIC) [Concomitant]
  13. SOYBEAN (SOYBEAN) [Concomitant]
  14. POLYETHYLENE GLYCOL ( POLYETHYLENE GLYCOL) (POLYETHYLENE GLYCOL) [Concomitant]
  15. TRAMADOL HYDROCHLORIDE [Suspect]
     Indication: FIBROMYALGIA
     Dosage: 200 MG (50 MG,4 IN 1 D),ORAL; 200 MG (50 MG,4 IN 1 D)
     Route: 048
     Dates: end: 20110108
  16. TRAMADOL HYDROCHLORIDE [Suspect]
     Indication: FIBROMYALGIA
     Dosage: 200 MG (50 MG,4 IN 1 D),ORAL; 200 MG (50 MG,4 IN 1 D)
     Route: 048
     Dates: start: 20110110
  17. ASPIRIN [Concomitant]
  18. CALTRATE D (CALCIUM CARBONATE, VITAMIN D) [Concomitant]
  19. ALBUTEROL [Concomitant]
  20. LASIX [Concomitant]
  21. MULTIVITAMIN (MULTIVITAMIN) (MULTIVITAMIN) [Concomitant]

REACTIONS (3)
  - HYPOGLYCAEMIA [None]
  - RHABDOMYOLYSIS [None]
  - SEROTONIN SYNDROME [None]
